FAERS Safety Report 23438974 (Version 1)
Quarter: 2024Q1

REPORT INFORMATION
  Report Type: Report from Study
  Country: CA (occurrence: CA)
  Receive Date: 20240124
  Receipt Date: 20240124
  Transmission Date: 20240409
  Serious: Yes (Other)
  Sender: FDA-Public Use
  Company Number: CA-JNJFOC-20240142925

PATIENT
  Age: 16 Year
  Sex: Female
  Weight: 63 kg

DRUGS (1)
  1. REMICADE [Suspect]
     Active Substance: INFLIXIMAB
     Indication: Crohn^s disease
     Route: 041
     Dates: start: 20211111

REACTIONS (3)
  - Pharyngeal oedema [Recovering/Resolving]
  - Abdominal pain [Recovering/Resolving]
  - Urticaria [Recovering/Resolving]

NARRATIVE: CASE EVENT DATE: 20240112
